FAERS Safety Report 6891579-9 (Version None)
Quarter: 2010Q3

REPORT INFORMATION
  Report Type: 
  Country: None (occurrence: None)
  Receive Date: 20100731
  Receipt Date: 20070830
  Transmission Date: 20110219
  Serious: Yes (Other)
  Sender: FDA-Public Use
  Company Number: US-PFIZER INC-2007072532

PATIENT
  Sex: Male
  Weight: 87.1 kg

DRUGS (4)
  1. NEURONTIN [Suspect]
     Indication: TRIGEMINAL NEURALGIA
     Dates: start: 20070606
  2. ALLEGRA [Concomitant]
  3. MONTELUKAST [Concomitant]
  4. ACYCLOVIR [Concomitant]

REACTIONS (2)
  - DUPUYTREN'S CONTRACTURE [None]
  - OEDEMA PERIPHERAL [None]
